FAERS Safety Report 5229061-7 (Version None)
Quarter: 2007Q1

REPORT INFORMATION
  Report Type: 
  Country: None (occurrence: None)
  Receive Date: 20070131
  Receipt Date: 20070117
  Transmission Date: 20070707
  Serious: Yes (Other)
  Sender: FDA-Public Use
  Company Number: 2007SP000190

PATIENT
  Age: 2 Year
  Sex: Male
  Weight: 10.8863 kg

DRUGS (6)
  1. XOPENEX [Suspect]
     Indication: NASOPHARYNGITIS
     Dosage: SEE IMAGE
     Route: 055
     Dates: start: 20060101, end: 20060101
  2. XOPENEX [Suspect]
     Indication: WHEEZING
     Dosage: SEE IMAGE
     Route: 055
     Dates: start: 20060101, end: 20060101
  3. XOPENEX [Suspect]
     Indication: NASOPHARYNGITIS
     Dosage: SEE IMAGE
     Route: 055
     Dates: start: 20061201, end: 20061201
  4. XOPENEX [Suspect]
     Indication: WHEEZING
     Dosage: SEE IMAGE
     Route: 055
     Dates: start: 20061201, end: 20061201
  5. XOPENEX [Suspect]
     Indication: NASOPHARYNGITIS
     Dosage: SEE IMAGE
     Route: 055
     Dates: start: 20070101
  6. XOPENEX [Suspect]
     Indication: WHEEZING
     Dosage: SEE IMAGE
     Route: 055
     Dates: start: 20070101

REACTIONS (8)
  - CONFUSIONAL STATE [None]
  - CONVULSION [None]
  - DISORIENTATION [None]
  - DYSKINESIA [None]
  - FEELING ABNORMAL [None]
  - LOSS OF CONSCIOUSNESS [None]
  - PALLOR [None]
  - PYREXIA [None]
